FAERS Safety Report 8862594 (Version 1)
Quarter: 2012Q4

REPORT INFORMATION
  Report Type: 
  Country: MX (occurrence: MX)
  Receive Date: 20121026
  Receipt Date: 20121026
  Transmission Date: 20130627
  Serious: Yes (Death)
  Sender: FDA-Public Use
  Company Number: PHHY2012MX095267

PATIENT
  Sex: Female

DRUGS (2)
  1. STALEVO [Suspect]
     Indication: PARKINSON^S DISEASE
     Dosage: 2 tablets (200/100/25) per day
  2. METFORMIN [Concomitant]
     Dosage: UNK UKN, UNK

REACTIONS (1)
  - Death [Fatal]
